FAERS Safety Report 6740223-X (Version None)
Quarter: 2010Q2

REPORT INFORMATION
  Report Type: 
  Country: None (occurrence: None)
  Receive Date: 20100525
  Receipt Date: 20100519
  Transmission Date: 20101027
  Serious: Yes (Other)
  Sender: FDA-Public Use
  Company Number: B0648246A

PATIENT
  Sex: Male

DRUGS (4)
  1. VENTOLIN [Suspect]
     Indication: ASTHMA
     Dosage: 100MCG AS REQUIRED
     Route: 055
  2. QVAR 40 [Concomitant]
     Indication: ASTHMA
     Dosage: 100MCG TWICE PER DAY
     Route: 055
     Dates: start: 20060701
  3. SIMVASTATIN [Concomitant]
     Dosage: 40MG PER DAY
     Route: 048
     Dates: start: 20060701
  4. OLANZAPINE [Concomitant]
     Dosage: 10MG PER DAY
     Route: 048
     Dates: start: 20060701

REACTIONS (1)
  - ATRIOVENTRICULAR BLOCK FIRST DEGREE [None]
